FAERS Safety Report 23553434 (Version 3)
Quarter: 2024Q3

REPORT INFORMATION
  Report Type: Spontaneous
  Country: IE (occurrence: IE)
  Receive Date: 20240222
  Receipt Date: 20240722
  Transmission Date: 20241016
  Serious: Yes (Other)
  Sender: SAMSUNG BIOEPIS
  Company Number: IE-SAMSUNG BIOEPIS-SB-2024-04941

PATIENT
  Age: 63 Year
  Sex: Female

DRUGS (1)
  1. ADALIMUMAB [Suspect]
     Active Substance: ADALIMUMAB\ISOPROPYL ALCOHOL
     Indication: Hidradenitis
     Dosage: UNKNOWN
     Route: 065
     Dates: start: 201706, end: 202109

REACTIONS (7)
  - Pericarditis constrictive [Recovered/Resolved]
  - Right ventricular failure [Recovered/Resolved]
  - Pleural effusion [Recovered/Resolved]
  - Hepatic cirrhosis [Unknown]
  - Congestive hepatopathy [Unknown]
  - N-terminal prohormone brain natriuretic peptide increased [Unknown]
  - Diastolic dysfunction [Recovered/Resolved]
